FAERS Safety Report 5795576-6 (Version None)
Quarter: 2008Q2

REPORT INFORMATION
  Report Type: 
  Country: None (occurrence: None)
  Receive Date: 20080630
  Receipt Date: 20080620
  Transmission Date: 20081010
  Serious: Yes (Hospitalization)
  Sender: FDA-Public Use
  Company Number: US-ABBOTT-08P-163-0458742-00

PATIENT
  Sex: Female
  Weight: 92.616 kg

DRUGS (1)
  1. SYNTHROID [Suspect]
     Indication: HYPOTHYROIDISM
     Route: 048
     Dates: start: 19880101

REACTIONS (5)
  - ABDOMINAL PAIN [None]
  - ALOPECIA [None]
  - COLITIS [None]
  - NAUSEA [None]
  - RETCHING [None]
